FAERS Safety Report 4476952-0 (Version None)
Quarter: 2004Q4

REPORT INFORMATION
  Report Type: 
  Country: None (occurrence: None)
  Receive Date: 20041013
  Receipt Date: 20041005
  Transmission Date: 20050328
  Serious: No
  Sender: FDA-Public Use
  Company Number: 2004PK01653

PATIENT
  Age: 12 Year
  Sex: Female

DRUGS (2)
  1. CARBOSTESIN [Suspect]
     Indication: LOCAL ANAESTHESIA
     Dates: start: 20040910
  2. TRI [Concomitant]

REACTIONS (1)
  - INJECTION SITE NECROSIS [None]
